FAERS Safety Report 10690955 (Version 1)
Quarter: 2015Q1

REPORT INFORMATION
  Report Type: Spontaneous
  Country: US (occurrence: None)
  Receive Date: 20150102
  Receipt Date: 20150102
  Transmission Date: 20150720
  Serious: Yes (Other)
  Sender: FDA-Public Use
  Company Number: US-JNJFOC-20141117361

PATIENT
  Age: 43 Year
  Sex: Female
  Weight: 72.58 kg

DRUGS (4)
  1. WELLBUTRIN (BUPROPION) UNSPECIFIED [Concomitant]
  2. XANAX (ALPRAZOLAM) UNSPECIFIED [Concomitant]
  3. LISTERINE WHITENING DISSOLVING STRIPS [Suspect]
     Active Substance: HYDROGEN PEROXIDE
     Indication: DENTAL CARE
     Dosage: , 1 IN, ORAL
     Route: 048
     Dates: start: 20141119, end: 20141119
  4. LATUDA (ANTIPSYCHOTICS) UNSPECIFIED [Concomitant]

REACTIONS (7)
  - Eye swelling [None]
  - Lip swelling [None]
  - Expired product administered [None]
  - Hypersensitivity [None]
  - Swelling face [None]
  - Dyspnoea [None]
  - Flushing [None]

NARRATIVE: CASE EVENT DATE: 20141119
